FAERS Safety Report 24303362 (Version 1)
Quarter: 2024Q3

REPORT INFORMATION
  Report Type: Spontaneous
  Country: US (occurrence: None)
  Receive Date: 20240910
  Receipt Date: 20240910
  Transmission Date: 20241016
  Serious: Yes (Hospitalization)
  Sender: Public
  Company Number: None

PATIENT
  Sex: Female
  Weight: 84.5 kg

DRUGS (1)
  1. FEMARA [Suspect]
     Active Substance: LETROZOLE
     Dates: end: 20240903

REACTIONS (3)
  - Haemoglobin decreased [None]
  - Hiatus hernia [None]
  - Gastric ulcer [None]

NARRATIVE: CASE EVENT DATE: 20240903
